FAERS Safety Report 24024236 (Version 1)
Quarter: 2024Q2

REPORT INFORMATION
  Report Type: Spontaneous
  Country: US (occurrence: US)
  Receive Date: 20240627
  Receipt Date: 20240627
  Transmission Date: 20240715
  Serious: No
  Sender: FDA-Public Use
  Company Number: US-ROCHE-3454711

PATIENT
  Age: 68 Year
  Sex: Female

DRUGS (2)
  1. ALECENSA [Suspect]
     Active Substance: ALECTINIB HYDROCHLORIDE
     Indication: Lung neoplasm malignant
     Route: 048
     Dates: start: 201810
  2. LORBRENA [Concomitant]
     Active Substance: LORLATINIB

REACTIONS (3)
  - Hallucination [Unknown]
  - Incontinence [Unknown]
  - Faeces soft [Unknown]
